FAERS Safety Report 9224308 (Version 1)
Quarter: 2013Q1

REPORT INFORMATION
  Report Type: Spontaneous
  Country: US (occurrence: None)
  Receive Date: 20120914
  Receipt Date: 20120914
  Transmission Date: 20140127
  Serious: Yes (Hospitalization)
  Sender: FDA-Public Use
  Company Number: JPI-P-022353

PATIENT
  Age: 25 Year
  Sex: Female
  Weight: 92.99 kg

DRUGS (6)
  1. XYREM (500 MILLIGRAM/MILLILITERS, SOLUTION) (SODIUM OXYBATE) [Suspect]
     Indication: CATAPLEXY
     Route: 048
     Dates: start: 201110
  2. MODAFINIL [Concomitant]
  3. AMLODIPINE [Concomitant]
  4. METOPROLOL [Concomitant]
  5. PANTOPRAZOLE SODIUM [Concomitant]
  6. ESCITALOPRAM [Concomitant]

REACTIONS (4)
  - Pneumonia [None]
  - Dyspnoea [None]
  - Cough [None]
  - Bronchitis [None]
